FAERS Safety Report 9225603 (Version 2)
Quarter: 2013Q2

REPORT INFORMATION
  Report Type: Report from Study
  Country: PL (occurrence: PL)
  Receive Date: 20130411
  Receipt Date: 20130417
  Transmission Date: 20140414
  Serious: Yes (Hospitalization, Other)
  Sender: FDA-Public Use
  Company Number: PL-ROCHE-1211618

PATIENT
  Age: 64 Year
  Sex: Female
  Weight: 54 kg

DRUGS (5)
  1. PEG-INTERFERON ALFA 2A [Suspect]
     Indication: CHRONIC HEPATITIS C
     Route: 065
     Dates: start: 20121017, end: 20130309
  2. RIBAVIRIN [Suspect]
     Indication: CHRONIC HEPATITIS C
     Route: 065
     Dates: start: 20121017, end: 20130305
  3. BLINDED TMC435 [Suspect]
     Indication: CHRONIC HEPATITIS C
     Route: 048
     Dates: start: 20121017, end: 20130108
  4. BLINDED TELAPREVIR [Suspect]
     Indication: CHRONIC HEPATITIS C
     Route: 048
     Dates: start: 20121017, end: 20130108
  5. NALOXONE [Concomitant]
     Route: 042

REACTIONS (3)
  - Chemical peritonitis [Recovered/Resolved]
  - Pancytopenia [Recovered/Resolved]
  - Cholecystitis infective [Recovered/Resolved]
